FAERS Safety Report 8111431-0 (Version None)
Quarter: 2012Q1

REPORT INFORMATION
  Report Type: 
  Country: None (occurrence: None)
  Receive Date: 20120203
  Receipt Date: 20111202
  Transmission Date: 20120608
  Serious: No
  Sender: FDA-Public Use
  Company Number: US-GLAXOSMITHKLINE-A0956468A

PATIENT
  Age: 34 Year
  Sex: Female

DRUGS (9)
  1. KEPPRA [Concomitant]
     Dosage: 750MG TWICE PER DAY
  2. LAMICTAL [Suspect]
     Indication: EPILEPSY
     Dosage: 500MG TWICE PER DAY
     Route: 050
  3. PHENOBARBITAL TAB [Concomitant]
     Dosage: 120MG AT NIGHT
  4. CRANBERRY [Concomitant]
     Indication: MEDICAL DIET
  5. CLARITIN [Concomitant]
     Dosage: 10MG PER DAY
  6. MEDROXYPROGESTERONE [Concomitant]
  7. MULTIVITAMIN WITH ZINC [Concomitant]
  8. WARFARIN SODIUM [Suspect]
     Indication: DEEP VEIN THROMBOSIS
     Route: 050
     Dates: start: 20110101
  9. PAXIL [Concomitant]
     Dosage: 20MG PER DAY

REACTIONS (2)
  - INTERNATIONAL NORMALISED RATIO ABNORMAL [None]
  - DRUG INTERACTION [None]
